FAERS Safety Report 8786529 (Version 2)
Quarter: 2012Q4

REPORT INFORMATION
  Report Type: 
  Country: US (occurrence: US)
  Receive Date: 20120914
  Receipt Date: 20120920
  Transmission Date: 20130627
  Serious: Yes (Other)
  Sender: FDA-Public Use
  Company Number: US-ASTRAZENECA-2012SE69672

PATIENT
  Age: 77 Year
  Sex: Male
  Weight: 81.6 kg

DRUGS (6)
  1. BRILINTA [Suspect]
     Indication: CARDIOMYOPATHY
     Route: 048
     Dates: start: 20120831, end: 20120902
  2. BRILINTA [Suspect]
     Indication: ANTICOAGULANT THERAPY
     Route: 048
     Dates: start: 20120831, end: 20120902
  3. BRILINTA [Suspect]
     Indication: CARDIOMYOPATHY
     Route: 048
     Dates: end: 20120910
  4. BRILINTA [Suspect]
     Indication: ANTICOAGULANT THERAPY
     Route: 048
     Dates: end: 20120910
  5. PLAVIX [Concomitant]
  6. ASA [Concomitant]

REACTIONS (6)
  - Swollen tongue [Unknown]
  - Oedema peripheral [Recovered/Resolved]
  - Oedema peripheral [Recovered/Resolved]
  - Pruritus [Recovered/Resolved]
  - Off label use [Unknown]
  - Off label use [Unknown]
